FAERS Safety Report 5066998-6 (Version None)
Quarter: 2006Q3

REPORT INFORMATION
  Report Type: 
  Country: None (occurrence: None)
  Receive Date: 20060726
  Receipt Date: 20060717
  Transmission Date: 20061208
  Serious: Yes (Hospitalization)
  Sender: FDA-Public Use
  Company Number: TPA2006A00766

PATIENT
  Age: 72 Year
  Sex: Male
  Weight: 104.7809 kg

DRUGS (7)
  1. ACTOS [Suspect]
     Indication: DIABETES MELLITUS
     Dosage: 15 MG, 1 IN 1 D, PER ORAL
     Route: 048
     Dates: start: 20041104
  2. GLUCOPHAGE [Suspect]
     Dosage: 1000 MG, 2 IN 1 D,
  3. GLUCOTROL (GLIPIZIDE) (10 MILLIGRAM, TABLETS) [Concomitant]
  4. BLOOD PRESSURE MEDICATION (ALL OTHER THERAPEUTIC PRODUCTS) [Concomitant]
  5. TESSALON [Concomitant]
  6. LOPRESSOR (METOPROLOL TARTRATE) (50 MILLIGRAM, TABLETS) [Concomitant]
  7. ZOCOR (SIMVASTATIN) (80 MILLIGRAM, TABLETS) [Concomitant]

REACTIONS (6)
  - ATRIAL FIBRILLATION [None]
  - BACK PAIN [None]
  - BLOOD GLUCOSE INCREASED [None]
  - BRONCHITIS [None]
  - FLANK PAIN [None]
  - MALAISE [None]
